FAERS Safety Report 9749164 (Version 2)
Quarter: 2013Q4

REPORT INFORMATION
  Report Type: Spontaneous
  Country: US (occurrence: US)
  Receive Date: 20131212
  Receipt Date: 20131212
  Transmission Date: 20140711
  Serious: Yes (Other)
  Sender: FDA-Public Use
  Company Number: US-TEVA-392923USA

PATIENT
  Age: 33 Year
  Sex: Female
  Weight: 68.55 kg

DRUGS (1)
  1. PARAGARD 380A [Suspect]
     Indication: CONTRACEPTION
     Dates: start: 20060209, end: 20130318

REACTIONS (4)
  - Embedded device [Not Recovered/Not Resolved]
  - Medical device complication [Not Recovered/Not Resolved]
  - Menorrhagia [Unknown]
  - Back pain [Unknown]
